FAERS Safety Report 4584595-3 (Version None)
Quarter: 2005Q1

REPORT INFORMATION
  Report Type: 
  Country: None (occurrence: None)
  Receive Date: 20050125
  Receipt Date: 20041001
  Transmission Date: 20050727
  Serious: No
  Sender: FDA-Public Use
  Company Number: USA040465529

PATIENT
  Age: 36 Year
  Sex: Female
  Weight: 50 kg

DRUGS (5)
  1. FORTEO [Suspect]
     Indication: BONE DISORDER
     Dosage: 20 UG DAY
     Dates: start: 20040324
  2. FORTEO [Suspect]
     Indication: OSTEOPOROSIS
     Dosage: 20 UG DAY
     Dates: start: 20040324
  3. CALCIUM GLUCONATE [Concomitant]
  4. VITAMIN D [Concomitant]
  5. PREMARIN [Concomitant]

REACTIONS (4)
  - INJECTION SITE HAEMORRHAGE [None]
  - INJECTION SITE MASS [None]
  - MUSCLE SPASMS [None]
  - SENSORY DISTURBANCE [None]
